FAERS Safety Report 16085553 (Version 1)
Quarter: 2019Q2

REPORT INFORMATION
  Report Type: Spontaneous
  Country: US (occurrence: US)
  Receive Date: 20190318
  Receipt Date: 20190318
  Transmission Date: 20190711
  Serious: No
  Sender: FDA-Public Use
  Company Number: None

PATIENT

DRUGS (2)
  1. OXYBUTYNIN CHLORIDE (2X DAILY) [Suspect]
     Active Substance: OXYBUTYNIN CHLORIDE
  2. VESICARE [Suspect]
     Active Substance: SOLIFENACIN SUCCINATE

REACTIONS (1)
  - Drug ineffective [None]
